FAERS Safety Report 8078343-2 (Version None)
Quarter: 2012Q1

REPORT INFORMATION
  Report Type: 
  Country: None (occurrence: None)
  Receive Date: 20120123
  Receipt Date: 20120109
  Transmission Date: 20120608
  Serious: Yes (Death)
  Sender: FDA-Public Use
  Company Number: JPI-P-004672

PATIENT
  Age: 21 Year
  Sex: Male
  Weight: 70.3075 kg

DRUGS (4)
  1. XYREM [Suspect]
     Indication: NARCOLEPSY
     Dosage: 3;6;4.5 GM (1.5 GM; 3 GM; 2.25GM, 2 IN 1 D) ORAL
     Route: 048
     Dates: start: 20080501, end: 20080901
  2. XYREM [Suspect]
     Indication: NARCOLEPSY
     Dosage: 3;6;4.5 GM (1.5 GM; 3 GM; 2.25GM, 2 IN 1 D) ORAL
     Route: 048
     Dates: start: 20070301, end: 20070401
  3. XYREM [Suspect]
     Indication: NARCOLEPSY
     Dosage: 3;6;4.5 GM (1.5 GM; 3 GM; 2.25GM, 2 IN 1 D) ORAL
     Route: 048
     Dates: start: 20070401, end: 20080201
  4. UNSPECIFIED DRUGS, MEDICAMENTS, AND BIOLOGICAL SUBSTANCES [Suspect]
     Indication: PRODUCT USED FOR UNKNOWN INDICATION
     Dates: end: 20080901

REACTIONS (1)
  - ACCIDENTAL POISONING [None]
